FAERS Safety Report 13012446 (Version 2)
Quarter: 2016Q4

REPORT INFORMATION
  Report Type: Spontaneous
  Country: US (occurrence: US)
  Receive Date: 20161209
  Receipt Date: 20161214
  Transmission Date: 20170207
  Serious: Yes (Other)
  Sender: FDA-Public Use
  Company Number: US-TEVA-718728ACC

PATIENT
  Age: 34 Year
  Sex: Female
  Weight: 61.74 kg

DRUGS (1)
  1. PLAN B ONE-STEP [Suspect]
     Active Substance: LEVONORGESTREL
     Indication: POST COITAL CONTRACEPTION
     Dates: start: 20161109, end: 20161109

REACTIONS (4)
  - Pregnancy after post coital contraception [Unknown]
  - Dysmenorrhoea [Not Recovered/Not Resolved]
  - Exposure during pregnancy [Unknown]
  - Vaginal discharge [Not Recovered/Not Resolved]

NARRATIVE: CASE EVENT DATE: 20161127
